FAERS Safety Report 5745395-1 (Version None)
Quarter: 2008Q2

REPORT INFORMATION
  Report Type: 
  Country: None (occurrence: None)
  Receive Date: 20080521
  Receipt Date: 20080514
  Transmission Date: 20081010
  Serious: Yes (Hospitalization)
  Sender: FDA-Public Use
  Company Number: US-AMGEN-US279622

PATIENT
  Sex: Female

DRUGS (3)
  1. VECTIBIX [Suspect]
     Indication: COLORECTAL CANCER
     Dates: start: 20080319, end: 20080505
  2. IRINOTECAN HCL [Concomitant]
     Dates: start: 20080319
  3. AVASTIN [Concomitant]
     Dates: start: 20080319

REACTIONS (2)
  - BLOOD CREATININE INCREASED [None]
  - RENAL FAILURE [None]
